FAERS Safety Report 8402540-7 (Version None)
Quarter: 2012Q2

REPORT INFORMATION
  Report Type: 
  Country: None (occurrence: None)
  Receive Date: 20120601
  Receipt Date: 20120529
  Transmission Date: 20120825
  Serious: Yes (Hospitalization)
  Sender: FDA-Public Use
  Company Number: CN-ROCHE-1073289

PATIENT
  Age: 68 Year
  Sex: Female

DRUGS (5)
  1. ASPIRIN [Concomitant]
  2. CEFTRIAXONE SODIUM [Suspect]
     Indication: PARONYCHIA
     Route: 041
     Dates: start: 20111117, end: 20111119
  3. IRBESARTAN [Concomitant]
  4. NIFEDIPINE [Concomitant]
  5. METOPROLOL TARTRATE [Concomitant]

REACTIONS (2)
  - MULTI-ORGAN FAILURE [None]
  - HAEMOLYTIC ANAEMIA [None]
